FAERS Safety Report 7876700-8 (Version None)
Quarter: 2011Q4

REPORT INFORMATION
  Report Type: 
  Country: None (occurrence: None)
  Receive Date: 20111031
  Receipt Date: 20111025
  Transmission Date: 20120403
  Serious: Yes (Other)
  Sender: FDA-Public Use
  Company Number: US-BAYER-2011-072199

PATIENT
  Age: 32 Year
  Sex: Female
  Weight: 51.247 kg

DRUGS (3)
  1. CYTOTEC [Concomitant]
     Indication: PREMEDICATION
     Dosage: 400 MG, UNK
     Route: 048
  2. MIRENA [Suspect]
     Route: 015
  3. MIRENA [Suspect]
     Indication: CONTRACEPTION
     Dosage: UNK
     Route: 015
     Dates: start: 20110729, end: 20110101

REACTIONS (2)
  - UTERINE PERFORATION [None]
  - ABDOMINAL PAIN LOWER [None]
